FAERS Safety Report 25294183 (Version 1)
Quarter: 2025Q2

REPORT INFORMATION
  Report Type: Spontaneous
  Country: US (occurrence: US)
  Receive Date: 20250511
  Receipt Date: 20250511
  Transmission Date: 20250716
  Serious: No
  Sender: SANOFI AVENTIS
  Company Number: US-SA-2025SA126233

PATIENT
  Sex: Female

DRUGS (1)
  1. LANTUS SOLOSTAR [Suspect]
     Active Substance: INSULIN GLARGINE
     Route: 065
     Dates: start: 2023

REACTIONS (5)
  - Headache [Unknown]
  - Thirst [Unknown]
  - Blood glucose increased [Unknown]
  - Drug ineffective [Unknown]
  - Product dispensing error [Unknown]
